FAERS Safety Report 8379826 (Version 2)
Quarter: 2013Q1

REPORT INFORMATION
  Report Type: Report from Study
  Country: US (occurrence: US)
  Receive Date: 20120129
  Receipt Date: 20130130
  Transmission Date: 20140127
  Serious: No
  Sender: FDA-Public Use
  Company Number: US-ABBOTT-11P-163-0879075-00

PATIENT
  Age: 66 Year
  Sex: Female

DRUGS (18)
  1. HUMIRA 40 MG/0.8 ML PEN [Suspect]
     Indication: ANKYLOSING SPONDYLITIS
     Dates: start: 20111013, end: 201201
  2. HUMIRA 40 MG/0.8 ML PEN [Suspect]
     Dates: start: 201201
  3. HUMIRA 40 MG/ 0.8 ML PRE-FILLED SYRINGE [Suspect]
     Indication: ANKYLOSING SPONDYLITIS
  4. EFFEXOR [Suspect]
     Indication: ANXIETY
  5. ADVIL [Concomitant]
     Indication: PAIN
     Dosage: PRN
  6. AMBIEN [Concomitant]
     Indication: INSOMNIA
     Dosage: AT BEDTIME
  7. ESTRACE [Concomitant]
     Indication: HORMONE REPLACEMENT THERAPY
  8. ESTRACE [Concomitant]
     Indication: BACK DISORDER
  9. ESTRACE [Concomitant]
     Indication: SLEEP DISORDER
  10. CLARITIN [Concomitant]
     Indication: HYPERSENSITIVITY
  11. BENADRYL [Concomitant]
     Indication: HYPERSENSITIVITY
     Dosage: PRN
  12. VIT D [Concomitant]
     Indication: PRODUCT USED FOR UNKNOWN INDICATION
     Dosage: OTC
  13. JUICE PLUS [Concomitant]
     Indication: PRODUCT USED FOR UNKNOWN INDICATION
     Dosage: DEHYDRATED FRUITS AND VEG
  14. ORGANIC SUPPLEMENT [Concomitant]
     Indication: SUPPLEMENTATION THERAPY
  15. SALMON OIL [Concomitant]
     Indication: PRODUCT USED FOR UNKNOWN INDICATION
     Dosage: OTC
  16. MAGNESIUM [Concomitant]
     Indication: PRODUCT USED FOR UNKNOWN INDICATION
  17. CALCIUM SUPPLEMENT [Concomitant]
     Indication: PRODUCT USED FOR UNKNOWN INDICATION
  18. NASONEX [Concomitant]
     Indication: PRODUCT USED FOR UNKNOWN INDICATION

REACTIONS (30)
  - Injection site papule [Not Recovered/Not Resolved]
  - Mood altered [Unknown]
  - Mood altered [Unknown]
  - Abnormal sensation in eye [Unknown]
  - Fatigue [Recovered/Resolved]
  - Seasonal allergy [Not Recovered/Not Resolved]
  - Lacrimation increased [Not Recovered/Not Resolved]
  - Rhinorrhoea [Not Recovered/Not Resolved]
  - Anxiety [Not Recovered/Not Resolved]
  - Depression [Unknown]
  - Injection site swelling [Not Recovered/Not Resolved]
  - Injection site swelling [Not Recovered/Not Resolved]
  - Injection site warmth [Not Recovered/Not Resolved]
  - Injection site erythema [Not Recovered/Not Resolved]
  - Injection site pruritus [Not Recovered/Not Resolved]
  - Eye pain [Unknown]
  - Injection site induration [Recovered/Resolved]
  - Injection site pruritus [Recovered/Resolved]
  - Headache [Unknown]
  - Skin discolouration [Recovering/Resolving]
  - Unevaluable event [Recovering/Resolving]
  - Infection [Recovering/Resolving]
  - Excoriation [Recovering/Resolving]
  - Wound [Recovering/Resolving]
  - Inflammation of wound [Recovering/Resolving]
  - Anxiety [Unknown]
  - Injection site erythema [Not Recovered/Not Resolved]
  - Injection site swelling [Not Recovered/Not Resolved]
  - Injection site pruritus [Not Recovered/Not Resolved]
  - Injection site pain [Not Recovered/Not Resolved]
